FAERS Safety Report 4999111-1 (Version None)
Quarter: 2006Q2

REPORT INFORMATION
  Report Type: 
  Country: None (occurrence: None)
  Receive Date: 20060509
  Receipt Date: 20060421
  Transmission Date: 20061013
  Serious: No
  Sender: FDA-Public Use
  Company Number: US200602004654

PATIENT
  Age: 70 Year
  Sex: Female

DRUGS (2)
  1. FORTEO [Suspect]
     Indication: OSTEOPOROSIS
     Dates: start: 20040501
  2. FORTEO [Concomitant]

REACTIONS (3)
  - CYST [None]
  - PHARMACEUTICAL PRODUCT COMPLAINT [None]
  - ROTATOR CUFF SYNDROME [None]
